FAERS Safety Report 25771690 (Version 1)
Quarter: 2025Q3

REPORT INFORMATION
  Report Type: Spontaneous
  Country: US (occurrence: US)
  Receive Date: 20250908
  Receipt Date: 20250908
  Transmission Date: 20251021
  Serious: Yes (Other)
  Sender: CATALYST PHARMA
  Company Number: US-CATALYST PHARMACEUTICALS, INC-US-CATA-25-01306

PATIENT
  Age: 64 Year
  Sex: Male
  Weight: 77.551 kg

DRUGS (2)
  1. FIRDAPSE [Suspect]
     Active Substance: AMIFAMPRIDINE PHOSPHATE
     Indication: Myasthenic syndrome
     Dosage: TITRATION: ONE TABLET THREE TIMES A DAY FOR 30 DAYS, THEN INCREASE BY 5MG EVERY 5 DAYS, UNTIL A MAX
     Route: 048
     Dates: start: 20240824
  2. FIRDAPSE [Suspect]
     Active Substance: AMIFAMPRIDINE PHOSPHATE
     Dosage: 1 TO 2 TABLETS THREE TIMES A DAY
     Route: 048
     Dates: start: 20250522

REACTIONS (3)
  - Myasthenic syndrome [Not Recovered/Not Resolved]
  - Condition aggravated [Not Recovered/Not Resolved]
  - Spinal operation [Unknown]

NARRATIVE: CASE EVENT DATE: 20250401
